FAERS Safety Report 8882834 (Version 3)
Quarter: 2012Q4

REPORT INFORMATION
  Report Type: 
  Country: US (occurrence: US)
  Receive Date: 20121103
  Receipt Date: 20121116
  Transmission Date: 20130627
  Serious: Yes (Other)
  Sender: FDA-Public Use
  Company Number: US-009507513-1210USA012177

PATIENT
  Age: 58 None
  Sex: Female

DRUGS (2)
  1. PEGINTRON [Suspect]
     Indication: HEPATITIS C
     Dosage: UNK
     Dates: start: 20121019
  2. RIBAVIRIN [Suspect]
     Indication: HEPATITIS C
     Dosage: UNK
     Route: 048
     Dates: start: 20121019

REACTIONS (18)
  - Syncope [Unknown]
  - Headache [Unknown]
  - Neck pain [Unknown]
  - Musculoskeletal pain [Unknown]
  - Vomiting [Unknown]
  - Pollakiuria [Unknown]
  - Fatigue [Unknown]
  - Eye disorder [Unknown]
  - Photophobia [Unknown]
  - Diarrhoea [Unknown]
  - Decreased appetite [Unknown]
  - Tremor [Unknown]
  - Red blood cell count decreased [Unknown]
  - Red blood cell count decreased [Unknown]
  - Fatigue [Unknown]
  - Decreased appetite [Unknown]
  - Visual acuity reduced [Unknown]
  - Gait disturbance [Unknown]
